FAERS Safety Report 9684920 (Version 4)
Quarter: 2014Q1

REPORT INFORMATION
  Report Type: Report from Study
  Country: PL (occurrence: PL)
  Receive Date: 20131113
  Receipt Date: 20140318
  Transmission Date: 20141002
  Serious: Yes (Death, Hospitalization)
  Sender: FDA-Public Use
  Company Number: PL-AMGEN-POLNI2013079550

PATIENT
  Age: 62 Year
  Sex: Male

DRUGS (1)
  1. DARBEPOETIN ALFA [Suspect]
     Indication: RENAL DISORDER
     Dosage: 20 MUG, QWK
     Route: 058
     Dates: start: 20130730, end: 20131029

REACTIONS (1)
  - Myocardial infarction [Fatal]
